FAERS Safety Report 7499320-6 (Version None)
Quarter: 2011Q2

REPORT INFORMATION
  Report Type: 
  Country: None (occurrence: None)
  Receive Date: 20110524
  Receipt Date: 20110504
  Transmission Date: 20111010
  Serious: No
  Sender: FDA-Public Use
  Company Number: US-B.I. PHARMACEUTICALS,INC./RIDGEFIELD-2011-BP-07640BP

PATIENT
  Age: 68 Year
  Sex: Male

DRUGS (6)
  1. PRADAXA [Suspect]
     Dosage: 300 MG
     Dates: start: 20110223, end: 20110228
  2. XOPENEX [Concomitant]
     Dates: start: 20110223
  3. JANUVIA [Concomitant]
     Dates: start: 20110223
  4. ROCEPHIN [Concomitant]
     Dates: start: 20110223, end: 20110304
  5. PULMICORT [Concomitant]
  6. GLIPIZIDE [Concomitant]
     Dates: start: 20110223

REACTIONS (1)
  - HEPATIC ENZYME INCREASED [None]
